FAERS Safety Report 17647218 (Version 5)
Quarter: 2020Q3

REPORT INFORMATION
  Report Type: Spontaneous
  Country: US (occurrence: US)
  Receive Date: 20200408
  Receipt Date: 20200702
  Transmission Date: 20201102
  Serious: No
  Sender: FDA-Public Use
  Company Number: US-GLAXOSMITHKLINE-US2020AMR050988

PATIENT
  Sex: Female

DRUGS (5)
  1. PEMBROLIZUMAB. [Suspect]
     Active Substance: PEMBROLIZUMAB
     Indication: PRODUCT USED FOR UNKNOWN INDICATION
     Dosage: UNK
     Route: 065
  2. ZEJULA [Suspect]
     Active Substance: NIRAPARIB
     Indication: METASTASIS
     Dosage: 200 MG, DAILY, IN THE AM WITH FOOD
     Route: 065
     Dates: start: 20200211
  3. ZEJULA [Suspect]
     Active Substance: NIRAPARIB
     Dosage: 200 MG, DAILY, IN THE AM WITH FOOD
     Route: 065
  4. ZEJULA [Suspect]
     Active Substance: NIRAPARIB
     Indication: FALLOPIAN TUBE CANCER
     Dosage: REDUCED DOSE (ALTERNATING BETWEEN ONE CAPSULE AND TWO CAPSULES EVERY OTHER DAY)
  5. AMLODIPINE [Suspect]
     Active Substance: AMLODIPINE BESYLATE
     Indication: BLOOD PRESSURE MEASUREMENT
     Dosage: UNK
     Route: 065

REACTIONS (18)
  - Fatigue [Not Recovered/Not Resolved]
  - Neutrophil count decreased [Unknown]
  - Seasonal allergy [Unknown]
  - Taste disorder [Unknown]
  - Off label use [Unknown]
  - Adverse food reaction [Unknown]
  - Heart rate increased [Recovering/Resolving]
  - Dysgeusia [Unknown]
  - Blood pressure increased [Unknown]
  - Carbohydrate antigen 125 increased [Unknown]
  - Rash [Recovered/Resolved]
  - Gastrointestinal motility disorder [Unknown]
  - Underdose [Unknown]
  - Laboratory test abnormal [Unknown]
  - Thyroid hormones decreased [Unknown]
  - Platelet count decreased [Unknown]
  - Constipation [Unknown]
  - Alopecia [Unknown]
